FAERS Safety Report 5265649-5 (Version None)
Quarter: 2007Q1

REPORT INFORMATION
  Report Type: 
  Country: None (occurrence: None)
  Receive Date: 20061213
  Receipt Date: 20050919
  Transmission Date: 20070707
  Serious: Yes (Other)
  Sender: FDA-Public Use
  Company Number: 2005UW13854

PATIENT
  Age: 64 Year
  Sex: Female
  Weight: 58.059 kg

DRUGS (5)
  1. IRESSA [Suspect]
     Indication: NON-SMALL CELL LUNG CANCER
     Dates: start: 20030101
  2. LIPITOR [Concomitant]
  3. SYNTHROID [Concomitant]
  4. ZESTRIL [Concomitant]
  5. PROTONIX [Concomitant]

REACTIONS (3)
  - DIARRHOEA [None]
  - RASH [None]
  - SKIN WRINKLING [None]
